FAERS Safety Report 5255039-3 (Version None)
Quarter: 2007Q1

REPORT INFORMATION
  Report Type: 
  Country: None (occurrence: None)
  Receive Date: 20070305
  Receipt Date: 20070220
  Transmission Date: 20070707
  Serious: Yes (Other)
  Sender: FDA-Public Use
  Company Number: GB-PFIZER INC-2006144111

PATIENT
  Age: 24 Year
  Sex: Female
  Weight: 66 kg

DRUGS (6)
  1. DEPO-PROVERA [Suspect]
     Indication: CONTRACEPTION
     Dates: start: 20060110, end: 20060110
  2. DEPO-PROVERA [Suspect]
     Dates: start: 20060403, end: 20060403
  3. DEPO-PROVERA [Suspect]
     Dates: start: 20060615, end: 20060615
  4. DEPO-PROVERA [Suspect]
     Dates: start: 20060917, end: 20060917
  5. QVAR 40 [Concomitant]
     Indication: ASTHMA
     Route: 055
  6. SALBUTAMOL [Concomitant]
     Indication: ASTHMA
     Route: 055

REACTIONS (2)
  - ABORTION SPONTANEOUS [None]
  - UNINTENDED PREGNANCY [None]
